FAERS Safety Report 19938450 (Version 1)
Quarter: 2021Q4

REPORT INFORMATION
  Report Type: Spontaneous
  Country: DE (occurrence: DE)
  Receive Date: 20211011
  Receipt Date: 20211011
  Transmission Date: 20220303
  Serious: Yes (Other)
  Sender: FDA-Public Use
  Company Number: DE-GILEAD-2021-0551840

PATIENT

DRUGS (1)
  1. SACITUZUMAB GOVITECAN-HZIY [Suspect]
     Active Substance: SACITUZUMAB GOVITECAN-HZIY
     Indication: Product used for unknown indication
     Dosage: UNK
     Route: 065

REACTIONS (12)
  - Autoimmune disorder [Unknown]
  - Pulmonary embolism [Unknown]
  - Pneumonia [Unknown]
  - Oral fungal infection [Unknown]
  - Oropharyngeal pain [Unknown]
  - Sleep disorder [Unknown]
  - Pyrexia [Unknown]
  - Productive cough [Unknown]
  - Hot flush [Unknown]
  - Chest pain [Unknown]
  - Dyspnoea [Unknown]
  - Epistaxis [Unknown]
